FAERS Safety Report 24670829 (Version 2)
Quarter: 2025Q2

REPORT INFORMATION
  Report Type: Spontaneous
  Country: CN (occurrence: CN)
  Receive Date: 20241127
  Receipt Date: 20250608
  Transmission Date: 20250716
  Serious: Yes (Death, Other)
  Sender: COHERUS
  Company Number: CN-SHANGHAI JUNSHI BIOSCIENCES CO., LTD.-CN2024012195

PATIENT

DRUGS (2)
  1. TORIPALIMAB [Suspect]
     Active Substance: TORIPALIMAB
     Indication: Transitional cell carcinoma
     Dates: start: 20240628, end: 20240628
  2. DISITAMAB VEDOTIN [Concomitant]
     Active Substance: DISITAMAB VEDOTIN
     Indication: Transitional cell carcinoma
     Dates: start: 20240628, end: 20240628

REACTIONS (2)
  - Death [Fatal]
  - Immune-mediated lung disease [Unknown]
